FAERS Safety Report 4334380-2 (Version None)
Quarter: 2004Q1

REPORT INFORMATION
  Report Type: 
  Country: None (occurrence: None)
  Receive Date: 20040326
  Receipt Date: 20031215
  Transmission Date: 20041129
  Serious: No
  Sender: FDA-Public Use
  Company Number: US-JNJFOC-20031203444

PATIENT
  Age: 18 Year
  Sex: Female

DRUGS (2)
  1. REMINYL [Suspect]
     Indication: MEMORY IMPAIRMENT
     Dosage: 8 MG, 1 IN 1 TOTAL, ORAL
     Route: 048
     Dates: start: 20030428, end: 20030428
  2. ORTHO TRI-CYCLEN [Concomitant]

REACTIONS (2)
  - NAUSEA [None]
  - VOMITING [None]
